FAERS Safety Report 9391427 (Version 1)
Quarter: 2013Q3

REPORT INFORMATION
  Report Type: Report from Study
  Country: US (occurrence: US)
  Receive Date: 20130709
  Receipt Date: 20130709
  Transmission Date: 20140515
  Serious: Yes (Other)
  Sender: FDA-Public Use
  Company Number: US-ABBOTT-13P-163-1114188-00

PATIENT
  Sex: Female

DRUGS (2)
  1. CREON [Suspect]
     Indication: PANCREATIC INSUFFICIENCY
  2. VIOKACE [Suspect]
     Indication: PRODUCT USED FOR UNKNOWN INDICATION

REACTIONS (4)
  - Pancreatic carcinoma [Unknown]
  - Abdominal pain upper [Unknown]
  - Abdominal distension [Unknown]
  - Drug ineffective [Unknown]
